FAERS Safety Report 5014740-7 (Version None)
Quarter: 2006Q2

REPORT INFORMATION
  Report Type: 
  Country: None (occurrence: None)
  Receive Date: 20060531
  Receipt Date: 20060523
  Transmission Date: 20061013
  Serious: Yes (Hospitalization)
  Sender: FDA-Public Use
  Company Number: JP-JPN-A200601677

PATIENT
  Age: 50 Year
  Sex: Female

DRUGS (1)
  1. ZEFIX [Suspect]
     Indication: VIRAL HEPATITIS CARRIER
     Dosage: 100MG PER DAY
     Route: 048

REACTIONS (1)
  - PANCYTOPENIA [None]
